FAERS Safety Report 7782093-7 (Version None)
Quarter: 2011Q3

REPORT INFORMATION
  Report Type: 
  Country: None (occurrence: None)
  Receive Date: 20110927
  Receipt Date: 20110914
  Transmission Date: 20111222
  Serious: Yes (Hospitalization, Other)
  Sender: FDA-Public Use
  Company Number: CA-ELI_LILLY_AND_COMPANY-CA201109001690

PATIENT
  Age: 89 Year
  Sex: Female

DRUGS (11)
  1. EURO-D [Concomitant]
  2. PANTOPRAZOLE [Concomitant]
  3. FORTEO [Suspect]
     Indication: OSTEOPOROSIS
     Dosage: 20 UG, QD
     Route: 058
     Dates: start: 20110829
  4. NORGESIC                           /00040301/ [Concomitant]
  5. ZYLOPRIM [Concomitant]
  6. CALCIUM CARBONATE [Concomitant]
  7. LAMOTRIGINE [Concomitant]
  8. AMLODIPINE [Concomitant]
  9. SIMVASTATIN [Concomitant]
  10. VENLAFAXINE HYDROCHLORIDE [Concomitant]
  11. RISEDRONATE SODIUM [Concomitant]

REACTIONS (2)
  - HEART RATE DECREASED [None]
  - PAIN [None]
